FAERS Safety Report 9494129 (Version 2)
Quarter: 2013Q3

REPORT INFORMATION
  Report Type: Spontaneous
  Country: GB (occurrence: None)
  Receive Date: 20130827
  Receipt Date: 20130827
  Transmission Date: 20140515
  Serious: Yes (Other)
  Sender: FDA-Public Use
  Company Number: GER/UKI/13/0034226

PATIENT
  Age: 84 Year
  Sex: Male

DRUGS (1)
  1. AMLODIPINE [Suspect]
     Indication: PRODUCT USED FOR UNKNOWN INDICATION

REACTIONS (6)
  - Fall [None]
  - Hypotension [None]
  - Drug dispensing error [None]
  - Circumstance or information capable of leading to medication error [None]
  - Wrong drug administered [None]
  - Product packaging issue [None]
